FAERS Safety Report 4680970-7 (Version None)
Quarter: 2005Q2

REPORT INFORMATION
  Report Type: 
  Country: None (occurrence: None)
  Receive Date: 20050601
  Receipt Date: 20050520
  Transmission Date: 20051028
  Serious: Yes (Life-Threatening, Hospitalization, Other)
  Sender: FDA-Public Use
  Company Number: 2003123896

PATIENT
  Age: 56 Year
  Sex: Male
  Weight: 79 kg

DRUGS (11)
  1. VFEND [Suspect]
     Indication: FEBRILE NEUTROPENIA
     Dosage: 800 MG (400 MG , BID), ORAL
     Route: 048
     Dates: start: 20031016, end: 20031031
  2. VFEND [Suspect]
     Indication: FUNGAL INFECTION
     Dosage: 800 MG (400 MG , BID), ORAL
     Route: 048
     Dates: start: 20031016, end: 20031031
  3. PIP/TAZO (PIPERACILLIN SODIUM, TAZOBACTAM SODIUM) [Suspect]
     Indication: BACTERIAL INFECTION
     Dosage: 12 GRAM (TID) , INTRAVENOUS
     Route: 042
     Dates: start: 20031028, end: 20031031
  4. PIP/TAZO (PIPERACILLIN SODIUM, TAZOBACTAM SODIUM) [Suspect]
     Indication: FEBRILE NEUTROPENIA
     Dosage: 12 GRAM (TID) , INTRAVENOUS
     Route: 042
     Dates: start: 20031028, end: 20031031
  5. BACTRIM (SULFAMETHAXAZOLE , TRIMETHOPRIM) [Concomitant]
  6. ACYCLOVIR [Concomitant]
  7. EPOETIN ALFA (EPOETIN ALFA) [Concomitant]
  8. SODIUM ALGINATE (SOLDIUM ALGINATE) [Concomitant]
  9. TRIMETHOPRIM SULFATE (TRIMETHOPRIM SULFATE) [Concomitant]
  10. VALACYCLOVIR HCL [Concomitant]
  11. SODIUM BICARBONATE IN PLASTIC CONTAINER [Concomitant]

REACTIONS (31)
  - ACTIVATED PARTIAL THROMBOPLASTIN TIME PROLONGED [None]
  - ANAEMIA [None]
  - BLOOD PHOSPHORUS INCREASED [None]
  - C-REACTIVE PROTEIN INCREASED [None]
  - CHEST X-RAY ABNORMAL [None]
  - CONJUNCTIVITIS [None]
  - DRUG ADMINISTRATION ERROR [None]
  - EOSINOPHILIA [None]
  - EXOPHTHALMOS [None]
  - EYE HAEMORRHAGE [None]
  - FEBRILE NEUTROPENIA [None]
  - GENERAL PHYSICAL HEALTH DETERIORATION [None]
  - HEPATITIS CHOLESTATIC [None]
  - HEPATOMEGALY [None]
  - HYPERKALAEMIA [None]
  - HYPERMAGNESAEMIA [None]
  - HYPOCALCAEMIA [None]
  - INTENTIONAL MISUSE [None]
  - LEUKOCYTOSIS [None]
  - NAUSEA [None]
  - OEDEMA PERIPHERAL [None]
  - OVERDOSE [None]
  - PHOTOSENSITIVITY REACTION [None]
  - PROTHROMBIN TIME PROLONGED [None]
  - RASH [None]
  - RENAL FAILURE [None]
  - SKIN EXFOLIATION [None]
  - SKIN NODULE [None]
  - SPLENOMEGALY [None]
  - THROMBOCYTOPENIA [None]
  - VOMITING [None]
